FAERS Safety Report 19404735 (Version 1)
Quarter: 2021Q2

REPORT INFORMATION
  Report Type: Spontaneous
  Country: US (occurrence: US)
  Receive Date: 20210611
  Receipt Date: 20210611
  Transmission Date: 20210717
  Serious: Yes (Other)
  Sender: FDA-Public Use
  Company Number: None

PATIENT
  Age: 48 Year
  Sex: Female
  Weight: 56.25 kg

DRUGS (1)
  1. TOPICLEAR SKIN LIGHTENING (HYDROQUINONE) [Suspect]
     Active Substance: HYDROQUINONE
     Indication: SKIN DISCOLOURATION
     Dosage: ?          QUANTITY:1 OUNCE(S);?
     Route: 061

REACTIONS (1)
  - Application site scar [None]

NARRATIVE: CASE EVENT DATE: 20210604
